FAERS Safety Report 4620828-2 (Version None)
Quarter: 2005Q1

REPORT INFORMATION
  Report Type: 
  Country: None (occurrence: None)
  Receive Date: 20050325
  Receipt Date: 20050311
  Transmission Date: 20050727
  Serious: Yes (Hospitalization)
  Sender: FDA-Public Use
  Company Number: FABR-11042

PATIENT
  Age: 30 Year
  Sex: Male
  Weight: 83.8 kg

DRUGS (13)
  1. FABRAZYME [Suspect]
     Indication: FABRY'S DISEASE
     Dosage: 85 MG Q2WKS IV
     Route: 042
     Dates: start: 20040611
  2. PREDNISONE [Concomitant]
  3. CYCLOSPORINE [Concomitant]
  4. NORVASC [Concomitant]
  5. ATENOLOL [Concomitant]
  6. SODIUM BICARBONATE [Concomitant]
  7. LIPITOR [Concomitant]
  8. ZYRTEC [Concomitant]
  9. TYLENOL (CAPLET) [Concomitant]
  10. CELLCEPT [Concomitant]
  11. LISINOPRIL [Concomitant]
  12. FERROUS [Concomitant]
  13. PROCRIT [Concomitant]

REACTIONS (5)
  - HEART RATE DECREASED [None]
  - INTRACARDIAC THROMBUS [None]
  - PYREXIA [None]
  - STAPHYLOCOCCAL BACTERAEMIA [None]
  - VENA CAVA THROMBOSIS [None]
